FAERS Safety Report 20947829 (Version 1)
Quarter: 2022Q2

REPORT INFORMATION
  Report Type: Spontaneous
  Country: US (occurrence: US)
  Receive Date: 20220611
  Receipt Date: 20220611
  Transmission Date: 20220720
  Serious: No
  Sender: FDA-Public Use
  Company Number: US-TEVA-2022-US-2045780

PATIENT
  Age: 62 Year
  Sex: Male

DRUGS (1)
  1. HYDROCHLOROTHIAZIDE\LOSARTAN [Suspect]
     Active Substance: HYDROCHLOROTHIAZIDE\LOSARTAN
     Indication: Hypertension
     Dosage: 12.5/50MG, ONE TABLET DAILY
     Route: 048
     Dates: end: 20141112

REACTIONS (1)
  - Cough [Unknown]

NARRATIVE: CASE EVENT DATE: 20140201
